FAERS Safety Report 4526954-0 (Version None)
Quarter: 2004Q4

REPORT INFORMATION
  Report Type: 
  Country: None (occurrence: None)
  Receive Date: 20041116
  Receipt Date: 20041029
  Transmission Date: 20050328
  Serious: No
  Sender: FDA-Public Use
  Company Number: 200410361BBE

PATIENT
  Age: 8 Year
  Sex: Male

DRUGS (1)
  1. GAMIMUNE N 10% [Suspect]
     Dosage: 12 G, INTRAVENOUS
     Route: 042
     Dates: start: 20041029

REACTIONS (3)
  - CHILLS [None]
  - ERYTHEMA [None]
  - WHEEZING [None]
